FAERS Safety Report 9097850 (Version 2)
Quarter: 2013Q1

REPORT INFORMATION
  Report Type: Spontaneous
  Country: AT (occurrence: AT)
  Receive Date: 20130212
  Receipt Date: 20130320
  Transmission Date: 20140127
  Serious: Yes (Death)
  Sender: FDA-Public Use
  Company Number: AT-SANOFI-AVENTIS-2013SA011030

PATIENT
  Age: 51 Year
  Sex: Female

DRUGS (5)
  1. LOVENOX [Suspect]
     Indication: ANTICOAGULANT THERAPY
     Route: 065
  2. FRAGMIN [Suspect]
     Indication: ANTICOAGULANT THERAPY
     Dosage: DOSE: 500 IE
     Route: 065
     Dates: start: 20130130
  3. LISINOPRIL [Concomitant]
     Route: 048
  4. CARVEDILOL [Concomitant]
     Route: 048
  5. AERIUS [Concomitant]
     Route: 048

REACTIONS (2)
  - Embolism [Fatal]
  - Rash [Unknown]
